FAERS Safety Report 25425088 (Version 1)
Quarter: 2025Q2

REPORT INFORMATION
  Report Type: Spontaneous
  Country: CN (occurrence: CN)
  Receive Date: 20250611
  Receipt Date: 20250611
  Transmission Date: 20250717
  Serious: Yes (Life-Threatening, Other)
  Sender: BRACCO
  Company Number: CN-BRACCO-2025CN03665

PATIENT
  Age: 58 Year
  Sex: Male

DRUGS (1)
  1. IOMEPROL [Suspect]
     Active Substance: IOMEPROL
     Indication: Computerised tomogram thorax
     Route: 013
     Dates: start: 20250422, end: 20250422

REACTIONS (2)
  - Hypersensitivity [Recovering/Resolving]
  - Electrocardiogram ST segment elevation [Recovering/Resolving]

NARRATIVE: CASE EVENT DATE: 20250422
